FAERS Safety Report 5109712-8 (Version None)
Quarter: 2006Q3

REPORT INFORMATION
  Report Type: 
  Country: None (occurrence: None)
  Receive Date: 20060918
  Receipt Date: 20060911
  Transmission Date: 20061208
  Serious: Yes (Life-Threatening, Hospitalization)
  Sender: FDA-Public Use
  Company Number: 2006BL005473

PATIENT
  Age: 77 Year
  Sex: Female

DRUGS (10)
  1. MINIMS FLUORESCEIN SODIUM 1% [Suspect]
     Indication: ANGIOGRAM
     Dosage: INTRAVENOUS
     Route: 042
     Dates: start: 20060724, end: 20060724
  2. AMLODIPINE [Concomitant]
  3. ASPIRIN [Concomitant]
  4. ATENOLOL [Concomitant]
  5. CALCICHEW [Concomitant]
  6. DICLOFENAC [Concomitant]
  7. ENALAPRIL [Concomitant]
  8. GLICLAZIDE [Concomitant]
  9. MISOPROSTOL [Concomitant]
  10. ROSIGLITAZONE [Concomitant]

REACTIONS (2)
  - ANAPHYLACTIC REACTION [None]
  - MYOCARDIAL INFARCTION [None]
